FAERS Safety Report 23353051 (Version 1)
Quarter: 2023Q4

REPORT INFORMATION
  Report Type: Spontaneous
  Country: GB (occurrence: GB)
  Receive Date: 20231230
  Receipt Date: 20231230
  Transmission Date: 20240110
  Serious: Yes (Hospitalization)
  Sender: FDA-Public Use
  Company Number: GB-Vifor (International) Inc.-VIT-2023-10128

PATIENT
  Age: 81 Year
  Sex: Male
  Weight: 70 kg

DRUGS (2)
  1. TAVNEOS [Suspect]
     Active Substance: AVACOPAN
     Indication: Granulomatosis with polyangiitis
     Dosage: 20 MILLIGRAM, QD
     Route: 065
     Dates: start: 20231028, end: 20231030
  2. PREDNISOLONE [Concomitant]
     Active Substance: PREDNISOLONE
     Dosage: REDUCED TO 15 MG/DAY
     Dates: start: 20231028

REACTIONS (2)
  - JC virus infection [Recovered/Resolved]
  - Disease recurrence [Recovered/Resolved]
